FAERS Safety Report 5511545-5 (Version None)
Quarter: 2007Q4

REPORT INFORMATION
  Report Type: 
  Country: None (occurrence: None)
  Receive Date: 20071109
  Receipt Date: 20071101
  Transmission Date: 20080405
  Serious: Yes (Hospitalization)
  Sender: FDA-Public Use
  Company Number: US-MERCK-0711USA00543

PATIENT
  Age: 55 Year
  Sex: Male

DRUGS (13)
  1. DECADRON [Suspect]
     Route: 048
  2. DOXORUBICIN [Concomitant]
     Route: 065
  3. VINCRISTINE SULFATE [Concomitant]
     Route: 065
  4. CYCLOPHOSPHAMIDE [Concomitant]
     Route: 065
  5. LANSOPRAZOLE [Concomitant]
     Route: 065
  6. ACYCLOVIR [Concomitant]
     Route: 065
  7. BUPROPION HYDROCHLORIDE [Concomitant]
     Route: 065
  8. FLUCONAZOLE [Concomitant]
     Route: 065
  9. FLUOXETINE [Concomitant]
     Route: 065
  10. TAMSULOSIN HYDROCHLORIDE [Concomitant]
     Route: 065
  11. SULFAMETHOXAZOLE AND TRIMETHOPRIM [Concomitant]
     Route: 065
  12. ASPIRIN [Concomitant]
     Route: 065
  13. THALIDOMIDE [Concomitant]
     Route: 065

REACTIONS (1)
  - MULTIPLE MYELOMA [None]
